FAERS Safety Report 9429309 (Version 1)
Quarter: 2013Q3

REPORT INFORMATION
  Report Type: Spontaneous
  Country: DE (occurrence: DE)
  Receive Date: 20130730
  Receipt Date: 20130730
  Transmission Date: 20140515
  Serious: Yes (Hospitalization)
  Sender: FDA-Public Use
  Company Number: DE-UCBSA-092711

PATIENT
  Sex: Female

DRUGS (12)
  1. VIMPAT [Suspect]
     Dosage: DOSE: 400 MG
  2. ERGENYL CHRONO [Interacting]
     Dosage: DOSE: 500 MG RETARD TABLET; PIECE 1-1-1-0
  3. FERRO SANOL DUODENAL [Concomitant]
     Dosage: DOSE: 100 MG PIECE 1-0-0-0
  4. AKINETON RETARD [Concomitant]
     Dosage: DOSE: 4 MG; PIECE 1-0-0-0
  5. BEPANTHEN [Concomitant]
     Dosage: EYES AND NASAL OINTMENT; AE 1-1-1-0
  6. CLEXANE [Concomitant]
     Dosage: DOSE: 40 MG 0.4 ML FS; PIECE 0-0-1-0
  7. FEMOSTON [Concomitant]
     Dosage: DOSE: 1 MG/10 MG; PIECE 0-1-0-0
  8. LAMOTRIGINE [Concomitant]
     Dosage: DOSE: 100 MG; PIECE 1-0-1-0
  9. L-THYROXINE [Concomitant]
     Dosage: DOSE: 50 ?G; PIECE 1-0-0-0
  10. MORONAL [Concomitant]
     Dosage: DOSE: 1-1-1-1 ML
  11. QUETIAPIN [Concomitant]
     Dosage: DOSE: 50 MG RETARD; PIECE 0-0-2-0
  12. RISPERDAL [Concomitant]
     Dosage: DOSE: 1 MG/ML SOLUTION; 1-0-1-0 ML

REACTIONS (3)
  - Gait disturbance [Unknown]
  - Pneumonia [Unknown]
  - Drug interaction [Unknown]
